FAERS Safety Report 9139005 (Version 2)
Quarter: 2013Q2

REPORT INFORMATION
  Report Type: Report from Study
  Country: US (occurrence: US)
  Receive Date: 20130305
  Receipt Date: 20130424
  Transmission Date: 20140414
  Serious: Yes (Other)
  Sender: FDA-Public Use
  Company Number: US-BRISTOL-MYERS SQUIBB COMPANY-17412909

PATIENT
  Age: 56 Year
  Sex: Female
  Weight: 118.4 kg

DRUGS (1)
  1. IPILIMUMAB [Suspect]
     Indication: MALIGNANT MELANOMA
     Dosage: LAST DOSE:13DEC12; TOTAL DOSE:354.9MG
     Route: 042
     Dates: start: 20121011

REACTIONS (1)
  - Hearing impaired [Not Recovered/Not Resolved]
